FAERS Safety Report 23479127 (Version 1)
Quarter: 2024Q1

REPORT INFORMATION
  Report Type: Spontaneous
  Country: US (occurrence: US)
  Receive Date: 20240205
  Receipt Date: 20240205
  Transmission Date: 20240410
  Serious: No
  Sender: FDA-Public Use
  Company Number: US-002147023-NVSC2024US023394

PATIENT
  Sex: Male

DRUGS (2)
  1. PROMACTA [Suspect]
     Active Substance: ELTROMBOPAG OLAMINE
     Indication: Anaemia folate deficiency
     Dosage: 12.5 MG, QD
     Route: 048
     Dates: start: 202207
  2. PROMACTA [Suspect]
     Active Substance: ELTROMBOPAG OLAMINE
     Indication: Thrombocytopenia

REACTIONS (1)
  - Urinary tract infection [Unknown]
